FAERS Safety Report 14497007 (Version 1)
Quarter: 2018Q1

REPORT INFORMATION
  Report Type: Spontaneous
  Country: US (occurrence: US)
  Receive Date: 20180207
  Receipt Date: 20180207
  Transmission Date: 20180509
  Serious: No
  Sender: FDA-Public Use
  Company Number: US-MALLINCKRODT-T201703388

PATIENT
  Age: 40 Year
  Sex: Male

DRUGS (2)
  1. INOMAX [Suspect]
     Active Substance: NITRIC OXIDE
     Indication: CYSTIC FIBROSIS
     Dosage: 5PPM (HIGH FLOW NASAL CANNULA AT 20LPM AND 35% OXYGEN)
     Dates: start: 20170806
  2. INOMAX [Suspect]
     Active Substance: NITRIC OXIDE
     Indication: PULMONARY HYPERTENSION

REACTIONS (1)
  - Oxygen saturation decreased [Recovering/Resolving]
